FAERS Safety Report 8296166-6 (Version None)
Quarter: 2012Q2

REPORT INFORMATION
  Report Type: 
  Country: None (occurrence: None)
  Receive Date: 20120418
  Receipt Date: 20120416
  Transmission Date: 20120825
  Serious: Yes (Hospitalization)
  Sender: FDA-Public Use
  Company Number: DE-GLAXOSMITHKLINE-D0075257A

PATIENT
  Age: 28 Year
  Sex: Female

DRUGS (5)
  1. OXCARBAZEPINE [Concomitant]
     Indication: EPILEPSY
     Route: 048
  2. CLOBAZAM [Concomitant]
     Indication: EPILEPSY
     Route: 048
  3. PHENOBARBITAL TAB [Concomitant]
     Indication: EPILEPSY
     Route: 048
  4. POTIGA [Suspect]
     Indication: EPILEPSY
     Route: 048
  5. LEVETIRACETAM [Concomitant]
     Indication: EPILEPSY
     Route: 048

REACTIONS (4)
  - AGGRESSION [None]
  - RESTLESSNESS [None]
  - INSOMNIA [None]
  - PSYCHOTIC DISORDER [None]
